FAERS Safety Report 12988765 (Version 6)
Quarter: 2017Q3

REPORT INFORMATION
  Report Type: Report from Study
  Country: JP (occurrence: JP)
  Receive Date: 20161130
  Receipt Date: 20170710
  Transmission Date: 20171127
  Serious: Yes (Death, Life-Threatening, Hospitalization)
  Sender: FDA-Public Use
  Company Number: JP-ASTRAZENECA-2016SF06395

PATIENT
  Age: 86 Year
  Sex: Female
  Weight: 35 kg

DRUGS (10)
  1. THYRADIN [Concomitant]
     Active Substance: LEVOTHYROXINE
     Indication: HYPOTHYROIDISM
     Route: 048
     Dates: end: 20161025
  2. TAKEPRON [Concomitant]
     Active Substance: LANSOPRAZOLE
     Indication: GASTRIC ULCER
     Route: 048
     Dates: end: 20161025
  3. MEILAX [Concomitant]
     Active Substance: ETHYL LOFLAZEPATE
     Dosage: 1.0MG UNKNOWN
     Route: 048
     Dates: end: 20161025
  4. ATORVASTATIN [Concomitant]
     Active Substance: ATORVASTATIN
     Indication: DYSLIPIDAEMIA
     Dosage: 100.0MG UNKNOWN
     Route: 048
     Dates: end: 20161025
  5. MIYA-BM [Concomitant]
     Active Substance: CLOSTRIDIUM BUTYRICUM SPORES STRAIN M-55
     Indication: GASTROENTERITIS
     Route: 048
     Dates: end: 20161025
  6. LOXOPROFEN [Concomitant]
     Active Substance: LOXOPROFEN
     Indication: CHEST PAIN
     Dosage: 60 MG, AS REQUIRED, EVERY DAY
     Route: 048
     Dates: end: 20161004
  7. ROZEREM [Concomitant]
     Active Substance: RAMELTEON
     Dosage: 8.0MG UNKNOWN
     Route: 048
     Dates: end: 20161025
  8. DOGMATYL [Concomitant]
     Active Substance: SULPIRIDE
     Dosage: NUMBER OF SEPARATE DOSAGES UNKNOWN
     Route: 048
     Dates: end: 20161025
  9. TAGRISSO [Suspect]
     Active Substance: OSIMERTINIB
     Indication: NON-SMALL CELL LUNG CANCER
     Route: 048
     Dates: start: 20160825, end: 20161004
  10. REBAMIPIDE [Concomitant]
     Active Substance: REBAMIPIDE
     Indication: GASTROENTERITIS
     Route: 048
     Dates: end: 20161004

REACTIONS (2)
  - Interstitial lung disease [Recovering/Resolving]
  - Pneumonia aspiration [Recovering/Resolving]

NARRATIVE: CASE EVENT DATE: 20161004
